FAERS Safety Report 6038335-1 (Version None)
Quarter: 2009Q1

REPORT INFORMATION
  Report Type: 
  Country: None (occurrence: None)
  Receive Date: 20090113
  Receipt Date: 20080319
  Transmission Date: 20090719
  Serious: Yes (Other)
  Sender: FDA-Public Use
  Company Number: 08-000488

PATIENT
  Age: 21 Year
  Sex: Female

DRUGS (1)
  1. FEMCON FE [Suspect]
     Indication: OVARIAN CYST
     Dosage: 0.4MG/35MCG,QD, ORAL
     Route: 048
     Dates: start: 20070801

REACTIONS (1)
  - METRORRHAGIA [None]
